FAERS Safety Report 18024663 (Version 12)
Quarter: 2020Q3

REPORT INFORMATION
  Report Type: Spontaneous
  Country: US (occurrence: US)
  Receive Date: 20200714
  Receipt Date: 20200929
  Transmission Date: 20201103
  Serious: No
  Sender: FDA-Public Use
  Company Number: US-AMGEN-USASP2020110381

PATIENT
  Age: 59 Year
  Sex: Male

DRUGS (2)
  1. NEULASTA [Suspect]
     Active Substance: PEGFILGRASTIM
     Dosage: 6 MILLIGRAM, (ON DAY 1 OF CYCLE 3)
     Route: 058
     Dates: start: 20200706
  2. NEULASTA [Suspect]
     Active Substance: PEGFILGRASTIM
     Indication: PROPHYLAXIS
     Dosage: 6 MILLIGRAM, (ON DAY 1 OF CYCLE 3)
     Route: 058

REACTIONS (2)
  - Incorrect dose administered by device [Unknown]
  - Device occlusion [Unknown]

NARRATIVE: CASE EVENT DATE: 20200707
